FAERS Safety Report 6847014-X (Version None)
Quarter: 2010Q3

REPORT INFORMATION
  Report Type: 
  Country: None (occurrence: None)
  Receive Date: 20100716
  Receipt Date: 20100709
  Transmission Date: 20110219
  Serious: Yes (Hospitalization)
  Sender: FDA-Public Use
  Company Number: US-BIOGENIDEC-2010BI021351

PATIENT
  Sex: Female

DRUGS (2)
  1. AVONEX [Suspect]
     Indication: MULTIPLE SCLEROSIS
     Route: 030
     Dates: start: 20060608, end: 20060820
  2. AVONEX [Suspect]
     Route: 030
     Dates: start: 20081024

REACTIONS (6)
  - DEHYDRATION [None]
  - HYPOCALCAEMIA [None]
  - HYPONATRAEMIA [None]
  - OSTEOPOROSIS [None]
  - POOR VENOUS ACCESS [None]
  - SYSTEMIC LUPUS ERYTHEMATOSUS [None]
